FAERS Safety Report 8435293-7 (Version None)
Quarter: 2012Q2

REPORT INFORMATION
  Report Type: 
  Country: None (occurrence: None)
  Receive Date: 20120614
  Receipt Date: 20120531
  Transmission Date: 20120825
  Serious: Yes (Death, Other)
  Sender: FDA-Public Use
  Company Number: US-UCBSA-059283

PATIENT
  Age: 56 Year
  Sex: Female

DRUGS (7)
  1. OXYCODONE HCL [Concomitant]
  2. ACETAMINOPHEN [Concomitant]
  3. BUTALBITAL [Suspect]
     Dates: end: 20100101
  4. METAXALONE [Suspect]
     Dates: end: 20100101
  5. LEVETIRACETAM [Suspect]
     Dates: end: 20100101
  6. VERAPAMIL [Concomitant]
  7. DULOXETIME HYDROCHLORIDE [Concomitant]

REACTIONS (1)
  - MULTIPLE DRUG OVERDOSE INTENTIONAL [None]
